FAERS Safety Report 6008611-7 (Version None)
Quarter: 2008Q4

REPORT INFORMATION
  Report Type: 
  Country: None (occurrence: None)
  Receive Date: 20081217
  Receipt Date: 20081209
  Transmission Date: 20090506
  Serious: Yes (Hospitalization)
  Sender: FDA-Public Use
  Company Number: US-GILEAD-2008-0018279

PATIENT
  Sex: Female

DRUGS (8)
  1. LETAIRIS [Suspect]
     Indication: PULMONARY ARTERIAL HYPERTENSION
  2. DIGOXIN [Concomitant]
  3. METOPROLOL TARTRATE [Concomitant]
  4. LASIX [Concomitant]
  5. ALBUTEROL [Concomitant]
  6. FOLIC ACID [Concomitant]
  7. OGESTREL 0.5/50-21 [Concomitant]
  8. OCTREOTIDE ACETATE [Concomitant]

REACTIONS (2)
  - BLOOD COUNT ABNORMAL [None]
  - INTESTINAL HAEMORRHAGE [None]
